FAERS Safety Report 17604659 (Version 2)
Quarter: 2020Q2

REPORT INFORMATION
  Report Type: Spontaneous
  Country: US (occurrence: US)
  Receive Date: 20200331
  Receipt Date: 20200512
  Transmission Date: 20200713
  Serious: No
  Sender: FDA-Public Use
  Company Number: US-PFIZER INC-2020129593

PATIENT
  Age: 62 Year
  Sex: Male
  Weight: 77.11 kg

DRUGS (2)
  1. ADVIL [Suspect]
     Active Substance: IBUPROFEN
     Indication: TOOTHACHE
     Dosage: 200 MG, UNK
     Dates: start: 2018, end: 20200325
  2. ADVIL [Suspect]
     Active Substance: IBUPROFEN
     Dosage: 20-25 TABLETS (SWALLOWED 3-4 PERIODICALLY)
     Dates: start: 20200323

REACTIONS (3)
  - Intentional overdose [Unknown]
  - Intentional product misuse [Unknown]
  - Drug ineffective [Unknown]

NARRATIVE: CASE EVENT DATE: 20200323
